FAERS Safety Report 4697573-0 (Version None)
Quarter: 2005Q2

REPORT INFORMATION
  Report Type: 
  Country: None (occurrence: None)
  Receive Date: 20050621
  Receipt Date: 20050601
  Transmission Date: 20051028
  Serious: Yes (Death)
  Sender: FDA-Public Use
  Company Number: USA050598066

PATIENT
  Age: 84 Year
  Sex: Male
  Weight: 51 kg

DRUGS (2)
  1. CYMBALTA [Suspect]
     Indication: BACK PAIN
     Dosage: 30 MG
     Dates: start: 20050409, end: 20050416
  2. FENTANYL [Concomitant]

REACTIONS (3)
  - ACUTE MYOCARDIAL INFARCTION [None]
  - LOSS OF CONSCIOUSNESS [None]
  - SOMNOLENCE [None]
